FAERS Safety Report 5576735-4 (Version None)
Quarter: 2007Q4

REPORT INFORMATION
  Report Type: 
  Country: None (occurrence: None)
  Receive Date: 20071228
  Receipt Date: 20071217
  Transmission Date: 20080405
  Serious: Yes (Hospitalization)
  Sender: FDA-Public Use
  Company Number: FR-JNJFOC-20071007426

PATIENT
  Sex: Male

DRUGS (5)
  1. DURAGESIC-100 [Suspect]
     Indication: PAIN
     Route: 062
  2. SYMBICORT [Concomitant]
     Indication: CHRONIC OBSTRUCTIVE PULMONARY DISEASE
     Route: 048
  3. APROVEL [Concomitant]
     Indication: HYPERTENSION
     Route: 048
  4. HYDERGINE [Concomitant]
     Route: 048
  5. KARDEGIC [Concomitant]
     Indication: CEREBROVASCULAR ACCIDENT
     Route: 048

REACTIONS (4)
  - BURNS SECOND DEGREE [None]
  - DRUG ADMINISTERED AT INAPPROPRIATE SITE [None]
  - GENERAL PHYSICAL HEALTH DETERIORATION [None]
  - SCIATICA [None]
